FAERS Safety Report 5140451-3 (Version None)
Quarter: 2006Q4

REPORT INFORMATION
  Report Type: 
  Country: None (occurrence: None)
  Receive Date: 20061025
  Receipt Date: 20061025
  Transmission Date: 20070319
  Serious: Yes (Hospitalization)
  Sender: FDA-Public Use
  Company Number: None

PATIENT
  Age: 43 Year
  Sex: Male
  Weight: 118.6 kg

DRUGS (5)
  1. TIZANIDINE HCL [Suspect]
     Indication: BACK PAIN
     Dosage: PO 3 TO 4 DAYS
     Route: 048
  2. TIZANIDINE HCL [Suspect]
     Indication: PAIN IN EXTREMITY
     Dosage: PO 3 TO 4 DAYS
     Route: 048
  3. NABUMETONE [Suspect]
     Indication: BACK PAIN
     Dosage: PO 3 TO 4 DAYS
     Route: 048
  4. NABUMETONE [Suspect]
     Indication: PAIN IN EXTREMITY
     Dosage: PO 3 TO 4 DAYS
     Route: 048
  5. ASPIRIN [Concomitant]

REACTIONS (4)
  - DEHYDRATION [None]
  - HEPATITIS [None]
  - INTERVERTEBRAL DISC DISORDER [None]
  - ORTHOSTATIC HYPOTENSION [None]
